FAERS Safety Report 9824024 (Version 2)
Quarter: 2014Q1

REPORT INFORMATION
  Report Type: Spontaneous
  Country: US (occurrence: US)
  Receive Date: 20140116
  Receipt Date: 20140116
  Transmission Date: 20141002
  Serious: No
  Sender: FDA-Public Use
  Company Number: US-GILEAD-2011-0038152

PATIENT
  Age: 67 Year
  Sex: Male

DRUGS (7)
  1. LETAIRIS [Suspect]
     Indication: PULMONARY HYPERTENSION
     Route: 048
     Dates: start: 20110303, end: 20110329
  2. TADALAFIL [Concomitant]
  3. WARFARIN [Concomitant]
  4. LASIX [Concomitant]
  5. PREDNISONE [Concomitant]
  6. LANTUS [Concomitant]
  7. TRILIPIX [Concomitant]

REACTIONS (2)
  - Local swelling [Recovered/Resolved]
  - Headache [Unknown]
